FAERS Safety Report 7693766-9 (Version None)
Quarter: 2011Q3

REPORT INFORMATION
  Report Type: 
  Country: None (occurrence: None)
  Receive Date: 20110819
  Receipt Date: 20110810
  Transmission Date: 20111222
  Serious: Yes (Hospitalization)
  Sender: FDA-Public Use
  Company Number: US-JNJFOC-20100103178

PATIENT
  Sex: Male
  Weight: 39.4 kg

DRUGS (9)
  1. AMLODIPINE [Concomitant]
  2. HUMIRA [Concomitant]
     Dates: start: 20080909, end: 20090909
  3. PREDNISONE [Concomitant]
     Indication: INFLAMMATORY BOWEL DISEASE
  4. FERROUS SULFATE TAB [Concomitant]
  5. HYOSCYAMINE [Concomitant]
  6. LANSOPRAZOLE [Concomitant]
  7. ACETAMINOPHEN [Concomitant]
  8. INFLIXIMAB [Suspect]
     Indication: INFLAMMATORY BOWEL DISEASE
     Dates: start: 20060810, end: 20080814
  9. ANTIBIOTICS [Concomitant]
     Indication: INFLAMMATORY BOWEL DISEASE

REACTIONS (2)
  - RASH PAPULAR [None]
  - VIRAL UPPER RESPIRATORY TRACT INFECTION [None]
